FAERS Safety Report 7433142-7 (Version None)
Quarter: 2011Q2

REPORT INFORMATION
  Report Type: 
  Country: None (occurrence: None)
  Receive Date: 20110422
  Receipt Date: 20110419
  Transmission Date: 20111010
  Serious: Yes (Other)
  Sender: FDA-Public Use
  Company Number: US-GILEAD-2011-0038189

PATIENT
  Age: 74 Year
  Sex: Male

DRUGS (1)
  1. LETAIRIS [Suspect]
     Indication: PULMONARY ARTERIAL HYPERTENSION
     Route: 048
     Dates: start: 20110316

REACTIONS (5)
  - MALAISE [None]
  - FATIGUE [None]
  - ARRHYTHMIA [None]
  - PALPITATIONS [None]
  - ASTHENIA [None]
